FAERS Safety Report 16665932 (Version 1)
Quarter: 2019Q3

REPORT INFORMATION
  Report Type: Spontaneous
  Country: US (occurrence: US)
  Receive Date: 20190804
  Receipt Date: 20190804
  Transmission Date: 20191004
  Serious: Yes (Other)
  Sender: FDA-Public Use
  Company Number: US-BRISTOL-MYERS SQUIBB COMPANY-BMS-2019-074631

PATIENT
  Sex: Male
  Weight: 83.91 kg

DRUGS (1)
  1. OPDIVO [Suspect]
     Active Substance: NIVOLUMAB
     Indication: RENAL CANCER STAGE IV
     Dosage: UNK UNK, Q2WK
     Route: 065
     Dates: start: 2015

REACTIONS (4)
  - Malignant neoplasm progression [Unknown]
  - Platelet count decreased [Unknown]
  - Drug ineffective [Unknown]
  - Diabetes mellitus [Unknown]
